FAERS Safety Report 9749772 (Version 2)
Quarter: 2013Q4

REPORT INFORMATION
  Report Type: Spontaneous
  Country: US (occurrence: US)
  Receive Date: 20131212
  Receipt Date: 20131212
  Transmission Date: 20140711
  Serious: Yes (Other)
  Sender: FDA-Public Use
  Company Number: US-TEVA-391385USA

PATIENT
  Age: 30 Year
  Sex: Female
  Weight: 92.62 kg

DRUGS (4)
  1. PARAGARD 380A [Suspect]
     Indication: CONTRACEPTION
     Route: 015
     Dates: start: 20090731, end: 20130311
  2. DOCUSATE SODIUM [Concomitant]
  3. MULTIVITAMINS [Concomitant]
  4. LISINOPRIL [Concomitant]
     Indication: HYPERTENSION

REACTIONS (2)
  - Abortion induced [Unknown]
  - Drug ineffective [Unknown]
